FAERS Safety Report 6836533-8 (Version None)
Quarter: 2010Q3

REPORT INFORMATION
  Report Type: 
  Country: None (occurrence: None)
  Receive Date: 20100713
  Receipt Date: 20100706
  Transmission Date: 20110219
  Serious: Yes (Other)
  Sender: FDA-Public Use
  Company Number: US-MYLANLABS-2010S1005644

PATIENT
  Age: 19 Year
  Sex: Female

DRUGS (3)
  1. AMNESTEEM [Suspect]
     Dosage: AVERAGE DAILY DOSE
     Dates: start: 20091016
  2. AMNESTEEM [Suspect]
     Dosage: AVERAGE DAILY DOSE
     Route: 048
     Dates: start: 20100204, end: 20100331
  3. AMNESTEEM [Suspect]
     Dosage: AVERAGE DAILY DOSE
     Route: 048
     Dates: start: 20100204, end: 20100331

REACTIONS (1)
  - DRUG EXPOSURE DURING PREGNANCY [None]
